FAERS Safety Report 13921658 (Version 1)
Quarter: 2017Q3

REPORT INFORMATION
  Report Type: Spontaneous
  Country: HK (occurrence: HK)
  Receive Date: 20170830
  Receipt Date: 20170830
  Transmission Date: 20171127
  Serious: Yes (Other)
  Sender: FDA-Public Use
  Company Number: HK-BRISTOL-MYERS SQUIBB COMPANY-BMS-2017-077560

PATIENT
  Age: 31 Year
  Sex: Female

DRUGS (1)
  1. NIVOLUMAB [Suspect]
     Active Substance: NIVOLUMAB
     Indication: ACUTE LYMPHOCYTIC LEUKAEMIA
     Dosage: 40 MG, UNK
     Route: 065

REACTIONS (2)
  - Graft versus host disease [Recovered/Resolved]
  - Product use in unapproved indication [Unknown]
